FAERS Safety Report 6976595-0 (Version None)
Quarter: 2010Q3

REPORT INFORMATION
  Report Type: 
  Country: None (occurrence: None)
  Receive Date: 20100910
  Receipt Date: 20100830
  Transmission Date: 20110219
  Serious: Yes (Hospitalization, Disabling, Other)
  Sender: FDA-Public Use
  Company Number: US-PFIZER INC-2010082332

PATIENT
  Sex: Female

DRUGS (10)
  1. CHANTIX [Suspect]
     Indication: SMOKING CESSATION THERAPY
     Dosage: 0.5MG/1MG
     Dates: start: 20070301, end: 20080201
  2. NORTRIPTYLINE [Concomitant]
     Indication: DEPRESSION
     Dosage: UNK
     Dates: start: 20010101, end: 20100101
  3. BUPROPION [Concomitant]
     Indication: DEPRESSION
     Dosage: UNK
     Dates: start: 20010101, end: 20100101
  4. VICODIN [Concomitant]
     Indication: MIGRAINE
     Dosage: UNK
     Dates: start: 19820101, end: 20100101
  5. FIORICET [Concomitant]
     Indication: MIGRAINE
     Dosage: UNK
     Dates: start: 19820101, end: 20100101
  6. ZOMIG [Concomitant]
     Indication: MIGRAINE
     Dosage: UNK
     Dates: start: 19820101, end: 20100101
  7. PROMETHAZINE [Concomitant]
     Indication: NAUSEA
     Dosage: UNK
     Dates: start: 20060101, end: 20080101
  8. MECLOZINE [Concomitant]
     Indication: VERTIGO
     Dosage: UNK
     Dates: start: 20060101, end: 20080101
  9. VIVELLE [Concomitant]
     Indication: MENOPAUSE
     Dosage: UNK
     Dates: start: 20060101, end: 20080101
  10. ESTRADIOL [Concomitant]
     Indication: MENOPAUSE
     Dosage: UNK
     Dates: start: 20060101, end: 20080101

REACTIONS (9)
  - AMNESIA [None]
  - ANXIETY [None]
  - BACK PAIN [None]
  - BIPOLAR DISORDER [None]
  - DEPRESSION [None]
  - INSOMNIA [None]
  - INTENTIONAL OVERDOSE [None]
  - MIGRAINE [None]
  - SUICIDE ATTEMPT [None]
